FAERS Safety Report 24656349 (Version 2)
Quarter: 2025Q4

REPORT INFORMATION
  Report Type: Spontaneous
  Country: US (occurrence: US)
  Receive Date: 20241124
  Receipt Date: 20251020
  Transmission Date: 20260118
  Serious: No
  Sender: MERCK SHARP & DOHME LLC
  Company Number: None

PATIENT
  Sex: Female
  Weight: 87.5 kg

DRUGS (25)
  1. SOTATERCEPT [Suspect]
     Active Substance: SOTATERCEPT
     Dates: start: 2024
  2. SOTATERCEPT [Suspect]
     Active Substance: SOTATERCEPT
  3. SOTATERCEPT [Suspect]
     Active Substance: SOTATERCEPT
  4. SOTATERCEPT [Suspect]
     Active Substance: SOTATERCEPT
  5. TYVASO [Suspect]
     Active Substance: TREPROSTINIL
     Indication: Pulmonary arterial hypertension
     Dosage: CONCENTRATION: 0.6 MG/ML
     Route: 055
     Dates: start: 20240223
  6. TYVASO [Suspect]
     Active Substance: TREPROSTINIL
     Indication: Pulmonary arterial hypertension
     Dosage: 54 MICROGRAM (9 BREATHS), QID. CONCENTRATION: 0.6 MG/ML
     Route: 055
     Dates: start: 2024
  7. TYVASO [Suspect]
     Active Substance: TREPROSTINIL
     Indication: Pulmonary arterial hypertension
     Dosage: 60 UG (10 BREATHS), FOUR TIMES A DAY (QID). CONCENTRATION: 0.6 MG/ML
     Route: 055
  8. TYVASO [Suspect]
     Active Substance: TREPROSTINIL
     Indication: Pulmonary arterial hypertension
     Dosage: 66 UG (11 BREATHS), FOUR TIMES A DAY (QID). CONCENTRATION: 0.6 MG/ML
     Route: 055
  9. DICLOFENAC SODIUM [Concomitant]
     Active Substance: DICLOFENAC SODIUM
  10. OMEPRAZOLE [Concomitant]
     Active Substance: OMEPRAZOLE
  11. JARDIANCE [Concomitant]
     Active Substance: EMPAGLIFLOZIN
  12. DRY EYES [Concomitant]
     Active Substance: MINERAL OIL\PETROLATUM
  13. CLINDAMYCIN HYDROCHLORIDE [Concomitant]
     Active Substance: CLINDAMYCIN HYDROCHLORIDE
  14. ASPIRIN [Concomitant]
     Active Substance: ASPIRIN
  15. ALLOPURINOL [Concomitant]
     Active Substance: ALLOPURINOL
  16. TADALAFIL [Concomitant]
     Active Substance: TADALAFIL
  17. TYLENOL ARTHRITIS PAIN [Concomitant]
     Active Substance: ACETAMINOPHEN
  18. BIOTIN [Concomitant]
     Active Substance: BIOTIN
  19. VITAMINS [Concomitant]
     Active Substance: VITAMINS
  20. SPIRONOLACTONE [Concomitant]
     Active Substance: SPIRONOLACTONE
     Dosage: DOSE DESCRIPTION : UNK
  21. OXYGEN [Concomitant]
     Active Substance: OXYGEN
  22. TORSEMIDE [Concomitant]
     Active Substance: TORSEMIDE
  23. VITAMIN D3 [Concomitant]
     Active Substance: CHOLECALCIFEROL
  24. FERROUS SULFATE [Concomitant]
     Active Substance: FERROUS SULFATE
  25. METOPROLOL TARTRATE [Concomitant]
     Active Substance: METOPROLOL TARTRATE

REACTIONS (4)
  - Laboratory test abnormal [Unknown]
  - Epistaxis [Unknown]
  - Fear of injection [Unknown]
  - Device difficult to use [Unknown]

NARRATIVE: CASE EVENT DATE: 20240101
